FAERS Safety Report 8283430 (Version 8)
Quarter: 2015Q2

REPORT INFORMATION
  Report Type: Report from Study
  Country: FR (occurrence: FR)
  Receive Date: 20111212
  Receipt Date: 20150626
  Transmission Date: 20150821
  Serious: Yes (Hospitalization)
  Sender: FDA-Public Use
  Company Number: FR-PFIZER INC-2011298090

PATIENT
  Age: 61 Year
  Sex: Female
  Weight: 62 kg

DRUGS (7)
  1. ARACYTINE [Suspect]
     Active Substance: CYTARABINE
     Indication: ACUTE MYELOID LEUKAEMIA
     Dosage: 200 MG/M2, CYCLIC, DAY 1 TO DAY 7
     Route: 041
     Dates: start: 20080128, end: 20080203
  2. GEMTUZUMAB OZOGAMICIN [Suspect]
     Active Substance: GEMTUZUMAB OZOGAMICIN
     Indication: ACUTE MYELOID LEUKAEMIA
     Dosage: 3 MG/M2 DAILY DOSE, CYCLIC, DAY 1, DAY 4 AND DAY 7
     Route: 041
     Dates: start: 20080128, end: 20080203
  3. ARACYTINE [Suspect]
     Active Substance: CYTARABINE
     Dosage: 1000 MG/M2/12H, CYCLIC, DAY 1 TO DAY 4
     Route: 041
     Dates: start: 20080215, end: 20080217
  4. CORDARONE [Suspect]
     Active Substance: AMIODARONE HYDROCHLORIDE
     Dosage: 200 MG, DAILY
     Route: 048
     Dates: start: 20080119, end: 20080414
  5. NOXAFIL [Suspect]
     Active Substance: POSACONAZOLE
     Dosage: UNK
     Dates: start: 20080228, end: 20080407
  6. CERUBIDINE [Suspect]
     Active Substance: DAUNORUBICIN HYDROCHLORIDE
     Indication: ACUTE MYELOID LEUKAEMIA
     Dosage: 60 MG/M2 DAILY DOSE, CYCLIC, DAY 1 TO DAY 7
     Route: 041
     Dates: start: 20080128, end: 20080203
  7. CERUBIDINE [Suspect]
     Active Substance: DAUNORUBICIN HYDROCHLORIDE
     Dosage: 60 MG/DAY ON DAY 1
     Route: 041
     Dates: start: 20080215, end: 20080216

REACTIONS (2)
  - Immune thrombocytopenic purpura [Recovered/Resolved]
  - Klebsiella sepsis [Recovered/Resolved]

NARRATIVE: CASE EVENT DATE: 20080408
